FAERS Safety Report 6600646-6 (Version None)
Quarter: 2010Q1

REPORT INFORMATION
  Report Type: 
  Country: None (occurrence: None)
  Receive Date: 20100223
  Receipt Date: 20100223
  Transmission Date: 20100710
  Serious: Yes (Life-Threatening)
  Sender: FDA-Public Use
  Company Number: None

PATIENT
  Age: 64 Year
  Sex: Male
  Weight: 61.2356 kg

DRUGS (1)
  1. PROTONIX [Suspect]
     Indication: DYSPEPSIA
     Dosage: ONE DAILY
     Dates: start: 20091222, end: 20091227

REACTIONS (6)
  - ABDOMINAL DISTENSION [None]
  - ABDOMINAL PAIN [None]
  - FOOD ALLERGY [None]
  - IMPAIRED WORK ABILITY [None]
  - INSOMNIA [None]
  - WEIGHT DECREASED [None]
